FAERS Safety Report 17566497 (Version 1)
Quarter: 2020Q1

REPORT INFORMATION
  Report Type: Spontaneous
  Country: ZA (occurrence: ZA)
  Receive Date: 20200320
  Receipt Date: 20200320
  Transmission Date: 20200409
  Serious: Yes (Death)
  Sender: FDA-Public Use
  Company Number: ZA-MYLANLABS-2020M1029844

PATIENT
  Sex: Female

DRUGS (7)
  1. STILPANE                           /01152401/ [Concomitant]
     Active Substance: ACETAMINOPHEN\CAFFEINE\CODEINE PHOSPHATE\MEPROBAMATE
     Dosage: UNK
  2. COXLEON [Concomitant]
     Active Substance: CELECOXIB
     Dosage: UNK
  3. BILOCOR [Concomitant]
     Active Substance: BISOPROLOL FUMARATE
     Dosage: UNK
  4. INDAPAMIDE MYLAN [Suspect]
     Active Substance: INDAPAMIDE
     Indication: PRODUCT USED FOR UNKNOWN INDICATION
     Dosage: UNK
  5. TAREG [Concomitant]
     Active Substance: VALSARTAN
     Dosage: UNK
  6. PURICOS [Concomitant]
     Active Substance: ALLOPURINOL
     Dosage: UNK
  7. AMLOC                              /00550802/ [Concomitant]
     Active Substance: RANITIDINE HYDROCHLORIDE
     Dosage: UNK

REACTIONS (1)
  - Death [Fatal]
